FAERS Safety Report 15599388 (Version 1)
Quarter: 2018Q4

REPORT INFORMATION
  Report Type: Spontaneous
  Country: SE (occurrence: SE)
  Receive Date: 20181108
  Receipt Date: 20181108
  Transmission Date: 20190205
  Serious: Yes (Hospitalization)
  Sender: FDA-Public Use
  Company Number: SE-ELI_LILLY_AND_COMPANY-SE201811001362

PATIENT
  Age: 41 Year
  Sex: Male

DRUGS (1)
  1. CYRAMZA [Suspect]
     Active Substance: RAMUCIRUMAB
     Indication: GASTRIC CANCER
     Dosage: 8 MG/KG, UNKNOWN
     Route: 065
     Dates: start: 20180927

REACTIONS (1)
  - Renal embolism [Not Recovered/Not Resolved]

NARRATIVE: CASE EVENT DATE: 20181017
